FAERS Safety Report 13254903 (Version 1)
Quarter: 2017Q1

REPORT INFORMATION
  Report Type: Spontaneous
  Country: US (occurrence: US)
  Receive Date: 20170221
  Receipt Date: 20170221
  Transmission Date: 20170428
  Serious: No
  Sender: FDA-Public Use
  Company Number: US-PFIZER INC-2017075179

PATIENT
  Age: 64 Year
  Sex: Female

DRUGS (5)
  1. PERCOCET [Suspect]
     Active Substance: ACETAMINOPHEN\OXYCODONE HYDROCHLORIDE
     Dosage: UNK
  2. CORTISONE ACETATE. [Suspect]
     Active Substance: CORTISONE ACETATE
     Dosage: UNK
  3. NIASPAN [Suspect]
     Active Substance: NIACIN
     Dosage: UNK
  4. LEVAQUIN [Suspect]
     Active Substance: LEVOFLOXACIN
     Dosage: UNK
  5. METHADONE HCL [Suspect]
     Active Substance: METHADONE HYDROCHLORIDE
     Dosage: UNK

REACTIONS (1)
  - Drug hypersensitivity [Unknown]
